FAERS Safety Report 14403052 (Version 1)
Quarter: 2018Q1

REPORT INFORMATION
  Report Type: Spontaneous
  Country: US (occurrence: US)
  Receive Date: 20180117
  Receipt Date: 20180117
  Transmission Date: 20180509
  Serious: Yes (Other)
  Sender: FDA-Public Use
  Company Number: None

PATIENT
  Age: 71 Year
  Sex: Female
  Weight: 68.49 kg

DRUGS (11)
  1. MONTELUKAST [Concomitant]
     Active Substance: MONTELUKAST SODIUM
  2. METOPROLOL ER [Concomitant]
     Active Substance: METOPROLOL SUCCINATE
  3. LEXAPRO [Suspect]
     Active Substance: ESCITALOPRAM OXALATE
     Indication: HYPERTENSION
     Dosage: 5MG TAB AUR 1@BEDTIME TABLET 1 MOUTH
     Route: 048
     Dates: start: 20171212, end: 20171217
  4. LEXAPRO [Suspect]
     Active Substance: ESCITALOPRAM OXALATE
     Indication: STRESS
     Dosage: 5MG TAB AUR 1@BEDTIME TABLET 1 MOUTH
     Route: 048
     Dates: start: 20171212, end: 20171217
  5. CLOPIDOGREL [Concomitant]
     Active Substance: CLOPIDOGREL BISULFATE
  6. ESTRADIOL. [Concomitant]
     Active Substance: ESTRADIOL
  7. PROBIOTIC [Suspect]
     Active Substance: PROBIOTICS NOS
  8. ARMOUR THYROID [Concomitant]
     Active Substance: THYROID, PORCINE
  9. ATORVASTATIN [Concomitant]
     Active Substance: ATORVASTATIN
  10. VITAMIN D3 [Concomitant]
     Active Substance: CHOLECALCIFEROL
  11. LOSARTIN [Concomitant]
     Active Substance: LOSARTAN

REACTIONS (5)
  - Headache [None]
  - Nightmare [None]
  - Hallucination, visual [None]
  - Diarrhoea [None]
  - Confusional state [None]

NARRATIVE: CASE EVENT DATE: 20171213
